FAERS Safety Report 8771815 (Version 3)
Quarter: 2012Q4

REPORT INFORMATION
  Report Type: 
  Country: US (occurrence: US)
  Receive Date: 20120906
  Receipt Date: 20121009
  Transmission Date: 20130627
  Serious: Yes (Other)
  Sender: FDA-Public Use
  Company Number: US-US-EMD SERONO, INC.-7158908

PATIENT
  Age: 19 None
  Sex: Female

DRUGS (3)
  1. REBIF [Suspect]
     Indication: MULTIPLE SCLEROSIS
     Route: 058
     Dates: start: 20120827, end: 20120827
  2. REBIF [Suspect]
     Route: 058
     Dates: start: 20120924
  3. RESTORIL [Concomitant]
     Indication: INSOMNIA

REACTIONS (11)
  - Homicidal ideation [Recovered/Resolved]
  - Suicidal ideation [Recovered/Resolved]
  - Depression [Recovered/Resolved]
  - Insomnia [Not Recovered/Not Resolved]
  - Amnesia [Not Recovered/Not Resolved]
  - Bladder disorder [Recovering/Resolving]
  - Pollakiuria [Unknown]
  - Tremor [Unknown]
  - Hypoaesthesia [Recovered/Resolved]
  - Multiple sclerosis [Not Recovered/Not Resolved]
  - Fatigue [Not Recovered/Not Resolved]
